FAERS Safety Report 7982098-7 (Version None)
Quarter: 2011Q4

REPORT INFORMATION
  Report Type: 
  Country: None (occurrence: None)
  Receive Date: 20111215
  Receipt Date: 20111213
  Transmission Date: 20120403
  Serious: Yes (Death)
  Sender: FDA-Public Use
  Company Number: US-CELGENEUS-028-21880-11121627

PATIENT
  Sex: Female

DRUGS (22)
  1. REVLIMID [Suspect]
     Indication: MULTIPLE MYELOMA
     Dosage: 15 MILLIGRAM
     Route: 048
     Dates: start: 20110701
  2. METADOL [Concomitant]
     Route: 065
  3. ASPIRIN [Concomitant]
     Dosage: 81 MILLIGRAM
     Route: 065
  4. LAX-A-DAY [Concomitant]
     Route: 065
  5. VALSARTAN  AND HYDROCHLOROTHIAZIDE [Concomitant]
     Route: 065
  6. FLOVENT [Concomitant]
     Route: 065
  7. FENTANYL [Concomitant]
     Route: 065
  8. PROCHLORPERAZINE [Concomitant]
     Route: 065
  9. DULCOLAX [Concomitant]
     Route: 065
  10. LOPERAMIDE HCL [Concomitant]
     Route: 065
  11. DECADRON [Concomitant]
     Route: 065
  12. HYDROMORPHONE HCL [Concomitant]
     Route: 065
  13. NEXIUM [Concomitant]
     Route: 065
  14. COLACE [Concomitant]
     Route: 065
  15. ZYLOPRIM [Concomitant]
     Route: 065
  16. PAMIDRONATE DISODIUM [Concomitant]
     Route: 065
  17. MICRO-K [Concomitant]
     Route: 065
  18. VALACYCLOVIR [Concomitant]
     Route: 065
  19. DIMENHYDRINATE [Concomitant]
     Route: 065
  20. SENOSIDES [Concomitant]
     Route: 065
  21. SALBUTAMOL HFA [Concomitant]
     Route: 065
  22. NOVO-GESIC [Concomitant]
     Route: 065

REACTIONS (1)
  - DEATH [None]
